FAERS Safety Report 4390413-9 (Version None)
Quarter: 2004Q2

REPORT INFORMATION
  Report Type: 
  Country: None (occurrence: None)
  Receive Date: 20040630
  Receipt Date: 20040615
  Transmission Date: 20050107
  Serious: Yes (Death, Hospitalization)
  Sender: FDA-Public Use
  Company Number: 2004-BP-04064BR

PATIENT
  Age: 86 Year

DRUGS (8)
  1. SPIRIVA [Suspect]
     Indication: CHRONIC OBSTRUCTIVE AIRWAYS DISEASE
     Dosage: 18 MCG (18 MCG, 1 KAI OAD)
     Route: 055
     Dates: start: 20030605, end: 20030814
  2. OXYGEN [Concomitant]
  3. OMEPRAZOLE [Concomitant]
  4. MONOCORDIL (ISOSORBIDE MONONITRATE) [Concomitant]
  5. BAMIFIX (BAMIFYLLINE HYDROCHLORIDE) [Concomitant]
  6. FORASEO (FORASEO) [Concomitant]
  7. LASIX [Concomitant]
  8. METICORTEN [Concomitant]

REACTIONS (3)
  - CHRONIC OBSTRUCTIVE AIRWAYS DISEASE EXACERBATED [None]
  - CORONARY ARTERY DISEASE [None]
  - PULMONARY FIBROSIS [None]
